FAERS Safety Report 6354718-4 (Version None)
Quarter: 2009Q3

REPORT INFORMATION
  Report Type: 
  Country: None (occurrence: None)
  Receive Date: 20090914
  Receipt Date: 20090904
  Transmission Date: 20100115
  Serious: Yes (Hospitalization, Congenital Anomaly)
  Sender: FDA-Public Use
  Company Number: JP-ASTRAZENECA-2009SE12509

PATIENT
  Sex: Male

DRUGS (1)
  1. BLOPRESS [Suspect]
     Route: 064

REACTIONS (2)
  - CONGENITAL RENAL DISORDER [None]
  - LUNG DISORDER [None]
